FAERS Safety Report 24694315 (Version 1)
Quarter: 2024Q4

REPORT INFORMATION
  Report Type: Spontaneous
  Country: CN (occurrence: CN)
  Receive Date: 20241204
  Receipt Date: 20241204
  Transmission Date: 20250115
  Serious: Yes (Hospitalization)
  Sender: ROCHE
  Company Number: CN-ROCHE-10000140835

PATIENT
  Sex: Female

DRUGS (8)
  1. TRASTUZUMAB EMTANSINE [Suspect]
     Active Substance: TRASTUZUMAB EMTANSINE
     Indication: Breast cancer
     Route: 042
     Dates: start: 20230919, end: 20230919
  2. TRASTUZUMAB EMTANSINE [Suspect]
     Active Substance: TRASTUZUMAB EMTANSINE
     Route: 042
     Dates: start: 20231101, end: 20231101
  3. TRASTUZUMAB EMTANSINE [Suspect]
     Active Substance: TRASTUZUMAB EMTANSINE
     Route: 042
     Dates: start: 20231008, end: 20231008
  4. TRASTUZUMAB EMTANSINE [Suspect]
     Active Substance: TRASTUZUMAB EMTANSINE
     Route: 042
     Dates: start: 20231124, end: 20231124
  5. HERCEPTIN [Suspect]
     Active Substance: TRASTUZUMAB
     Indication: Breast cancer
     Route: 065
     Dates: start: 20191120, end: 20210616
  6. HERCEPTIN [Suspect]
     Active Substance: TRASTUZUMAB
     Route: 065
     Dates: start: 20221123
  7. AMLODIPINE (AMLODIPINE BESILATE) [Concomitant]
     Route: 048
     Dates: start: 2011
  8. Repaglinide Tablets (Prandin) [Concomitant]
     Indication: Diabetes mellitus
     Route: 048
     Dates: start: 2015

REACTIONS (10)
  - Diarrhoea [Unknown]
  - Abdominal pain [Unknown]
  - Disease progression [Unknown]
  - Platelet count decreased [Recovered/Resolved]
  - White blood cell count decreased [Recovered/Resolved]
  - Melaena [Unknown]
  - Constipation [Recovering/Resolving]
  - Neutrophil count decreased [Unknown]
  - Klebsiella infection [Unknown]
  - Haemoptysis [Recovered/Resolved]

NARRATIVE: CASE EVENT DATE: 20230926
